FAERS Safety Report 7743025-0 (Version None)
Quarter: 2011Q3

REPORT INFORMATION
  Report Type: 
  Country: None (occurrence: None)
  Receive Date: 20110912
  Receipt Date: 20110831
  Transmission Date: 20111222
  Serious: Yes (Death, Hospitalization)
  Sender: FDA-Public Use
  Company Number: DE-ROCHE-775316

PATIENT
  Sex: Female

DRUGS (5)
  1. ROFERON-A [Suspect]
     Indication: MALIGNANT MELANOMA
     Dosage: DAILY
     Route: 058
     Dates: start: 20101001, end: 20110501
  2. MCP [Concomitant]
     Dosage: IF REQUIRED
  3. DEXAMETHASONE [Concomitant]
  4. AMLODIPINE [Concomitant]
  5. PANTOPRAZOLE [Concomitant]

REACTIONS (9)
  - PULMONARY EMBOLISM [None]
  - ANAEMIA [None]
  - NEOPLASM MALIGNANT [None]
  - OESOPHAGEAL CANDIDIASIS [None]
  - HYPOTHYROIDISM [None]
  - INFLUENZA LIKE ILLNESS [None]
  - FATIGUE [None]
  - NAUSEA [None]
  - DIARRHOEA [None]
